FAERS Safety Report 8311224-5 (Version None)
Quarter: 2012Q2

REPORT INFORMATION
  Report Type: 
  Country: None (occurrence: None)
  Receive Date: 20120425
  Receipt Date: 20120416
  Transmission Date: 20120825
  Serious: Yes (Hospitalization)
  Sender: FDA-Public Use
  Company Number: US-ASTRAZENECA-2011SE47342

PATIENT
  Age: 67 Year

DRUGS (13)
  1. COREG [Concomitant]
  2. CALCIUM [Concomitant]
  3. CYMBALTA [Concomitant]
  4. NEXIUM [Suspect]
     Route: 048
  5. PLAVIX [Concomitant]
  6. ZOFRAN [Concomitant]
  7. LIDOCAINE [Concomitant]
  8. VITAMIN B-12 [Concomitant]
  9. MEGASE [Concomitant]
  10. DICYCLOMINE [Concomitant]
  11. VICODIN [Concomitant]
  12. DIAZEPAM [Concomitant]
  13. VITAMIN D [Concomitant]

REACTIONS (11)
  - INTESTINAL PROLAPSE [None]
  - NEUROPATHY PERIPHERAL [None]
  - HIP FRACTURE [None]
  - MYOCARDIAL INFARCTION [None]
  - WEIGHT DECREASED [None]
  - APHAGIA [None]
  - CARDIAC FAILURE CONGESTIVE [None]
  - MALAISE [None]
  - GASTRIC DISORDER [None]
  - MENTAL IMPAIRMENT [None]
  - HERNIA [None]
